FAERS Safety Report 9062083 (Version 1)
Quarter: 2013Q1

REPORT INFORMATION
  Report Type: Spontaneous
  Country: US (occurrence: US)
  Receive Date: 20130127
  Receipt Date: 20130127
  Transmission Date: 20140127
  Serious: No
  Sender: FDA-Public Use
  Company Number: US-ALLERGAN-1209642US

PATIENT
  Sex: Female

DRUGS (15)
  1. PRED FORTE [Suspect]
     Indication: POSTOPERATIVE CARE
     Dosage: 1 GTT OD, QD
     Route: 047
     Dates: start: 2012
  2. PRED FORTE [Suspect]
     Dosage: 1 GTT OS, QID
     Route: 047
     Dates: start: 20120702
  3. PRED FORTE [Suspect]
     Dosage: 1 GTT OD, QID
     Route: 047
     Dates: start: 20120611, end: 20120711
  4. COMBIGAN[R] [Concomitant]
     Indication: GLAUCOMA
     Dosage: 1 GTT OU, BID
     Route: 047
  5. XALATAN [Concomitant]
     Indication: GLAUCOMA
     Dosage: 1 GTT OU, QD
     Route: 047
  6. BROMDAY [Concomitant]
     Indication: POST PROCEDURAL COMPLICATION
     Dosage: 1 GTT OU, QD
     Route: 047
     Dates: start: 201206
  7. LIPITOR [Concomitant]
     Indication: BLOOD CHOLESTEROL INCREASED
     Dosage: ONCE DAILY, QD
     Route: 048
  8. MOTRIN [Concomitant]
     Indication: ARTHRITIS
     Dosage: 800 MG, BID
     Route: 048
  9. ACTONEL [Concomitant]
     Indication: OSTEOPENIA
     Dosage: ONCE PER MONTH
     Route: 048
  10. PREMPRO [Concomitant]
     Indication: HORMONE REPLACEMENT THERAPY
     Dosage: ONCE DAILY
     Route: 048
  11. NEXIUM [Concomitant]
     Indication: GASTROOESOPHAGEAL REFLUX DISEASE
     Dosage: 40 MG, QD
     Route: 048
  12. POTASSIUM CITRATE [Concomitant]
     Indication: NEPHROLITHIASIS
     Dosage: ONCE DAILY
     Route: 048
  13. ZYRTEC [Concomitant]
     Indication: HYPERSENSITIVITY
     Dosage: ONCE DAILY
     Route: 048
  14. ASTEPRO [Concomitant]
     Indication: HYPERSENSITIVITY
     Dosage: DAILY
     Route: 045
  15. LOVAZA [Concomitant]
     Indication: BLOOD CHOLESTEROL INCREASED
     Dosage: ONCE DAILY
     Route: 048

REACTIONS (3)
  - Product quality issue [Unknown]
  - Vision blurred [Unknown]
  - Vision blurred [Unknown]
